FAERS Safety Report 8909150 (Version 1)
Quarter: 2012Q4

REPORT INFORMATION
  Report Type: 
  Country: US (occurrence: US)
  Receive Date: 20121113
  Receipt Date: 20121113
  Transmission Date: 20130627
  Serious: No
  Sender: FDA-Public Use
  Company Number: US-AMGEN-USASP2012011382

PATIENT
  Age: 34 Year
  Sex: Female

DRUGS (6)
  1. ENBREL [Suspect]
     Indication: PRODUCT USED FOR UNKNOWN INDICATION
     Dosage: 50 mg, qwk
     Route: 058
  2. IBUPROFEN [Concomitant]
     Dosage: 200 mg, UNK
  3. HYDROCHLOROTH [Concomitant]
     Dosage: 12.5 mg, UNK
  4. CLOBEX                             /00012002/ [Concomitant]
  5. STOOL SOFTENER [Concomitant]
     Dosage: 100 mg, UNK
  6. DERMA SMOOTH FS [Concomitant]

REACTIONS (2)
  - Urticaria [Unknown]
  - Underdose [Unknown]
